FAERS Safety Report 7528416-5 (Version None)
Quarter: 2011Q2

REPORT INFORMATION
  Report Type: 
  Country: None (occurrence: None)
  Receive Date: 20110607
  Receipt Date: 20101015
  Transmission Date: 20111010
  Serious: No
  Sender: FDA-Public Use
  Company Number: US-ASTRAZENECA-2010SE50323

PATIENT
  Sex: Female

DRUGS (3)
  1. PRILOSEC OTC [Suspect]
     Indication: GASTROOESOPHAGEAL REFLUX DISEASE
     Route: 048
     Dates: start: 20101013
  2. PRILOSEC OTC [Suspect]
     Indication: OESOPHAGEAL STENOSIS
     Route: 048
     Dates: start: 20101013
  3. ATACAND [Concomitant]
     Dosage: UNKNOWN
     Route: 048

REACTIONS (4)
  - COLD SWEAT [None]
  - NASAL DISCOMFORT [None]
  - RHINORRHOEA [None]
  - DISCOMFORT [None]
